FAERS Safety Report 9275864 (Version 5)
Quarter: 2014Q2

REPORT INFORMATION
  Report Type: Spontaneous
  Country: US (occurrence: US)
  Receive Date: 20130507
  Receipt Date: 20140415
  Transmission Date: 20141212
  Serious: No
  Sender: FDA-Public Use
  Company Number: US-009507513-1305USA001673

PATIENT
  Sex: Male
  Weight: 95.24 kg

DRUGS (3)
  1. PROPECIA [Suspect]
     Indication: ALOPECIA
     Dosage: 1 MG, UNK
     Route: 048
     Dates: start: 20010119, end: 20030613
  2. CLARITIN-D [Concomitant]
     Indication: SEASONAL ALLERGY
  3. ALLEGRA-D [Concomitant]
     Indication: SEASONAL ALLERGY

REACTIONS (11)
  - Blood testosterone decreased [Recovering/Resolving]
  - Alopecia [Unknown]
  - Groin pain [Unknown]
  - Hypogonadism [Unknown]
  - Fatigue [Unknown]
  - Oral viral infection [Unknown]
  - Sexual dysfunction [Unknown]
  - Semen volume decreased [Unknown]
  - Erectile dysfunction [Unknown]
  - Drug ineffective [Unknown]
  - Testicular pain [Unknown]
